FAERS Safety Report 19918936 (Version 1)
Quarter: 2021Q4

REPORT INFORMATION
  Report Type: Report from Study
  Country: US (occurrence: US)
  Receive Date: 20211004
  Receipt Date: 20211004
  Transmission Date: 20220303
  Serious: Yes (Hospitalization, Other)
  Sender: FDA-Public Use
  Company Number: US-BIONICAL EMAS-2021ETO000145

PATIENT

DRUGS (2)
  1. ALKINDI SPRINKLE [Suspect]
     Active Substance: HYDROCORTISONE
     Indication: Adrenogenital syndrome
     Dosage: 0.5 MG, 0.5MG IN THE MORNING, 1MG AFTERNOON, AND 2MG IN THE EVENING
     Route: 048
     Dates: start: 20201217
  2. ALKINDI SPRINKLE [Suspect]
     Active Substance: HYDROCORTISONE
     Dosage: 0.5 MG, 3 CAP IN MORNING, 2 CAP IN AFTERNOON, AND 5 CAP IN EVENING
     Route: 048
     Dates: start: 20210419

REACTIONS (4)
  - Hospitalisation [Recovered/Resolved]
  - Coma [Recovered/Resolved]
  - Blood glucose increased [Recovered/Resolved]
  - Therapeutic product effect incomplete [Unknown]

NARRATIVE: CASE EVENT DATE: 20210804
